FAERS Safety Report 12422181 (Version 1)
Quarter: 2016Q2

REPORT INFORMATION
  Report Type: Spontaneous
  Country: NL (occurrence: NL)
  Receive Date: 20160601
  Receipt Date: 20160601
  Transmission Date: 20160815
  Serious: Yes (Other)
  Sender: FDA-Public Use
  Company Number: PHHY2016NL072154

PATIENT
  Age: 71 Year
  Sex: Female

DRUGS (1)
  1. OLANZAPINE SANDOZ [Suspect]
     Active Substance: OLANZAPINE
     Indication: PRODUCT USED FOR UNKNOWN INDICATION
     Route: 065

REACTIONS (9)
  - Neck pain [Unknown]
  - Movement disorder [Unknown]
  - Osteoarthritis [Unknown]
  - Spinal fracture [Unknown]
  - Back pain [Unknown]
  - Fall [Unknown]
  - Pain [Unknown]
  - Stenosis [Unknown]
  - Arthralgia [Unknown]

NARRATIVE: CASE EVENT DATE: 201303
